FAERS Safety Report 9634128 (Version 2)
Quarter: 2013Q4

REPORT INFORMATION
  Report Type: Spontaneous
  Country: DE (occurrence: None)
  Receive Date: 20131017
  Receipt Date: 20131209
  Transmission Date: 20140711
  Serious: Yes (Hospitalization)
  Sender: FDA-Public Use
  Company Number: 2013MPI00613

PATIENT
  Age: 29 Year
  Sex: Male

DRUGS (11)
  1. BRENTUXIMAB VEDOTIN (BRENTUXIMAB VEDOTIN) INJECTION [Suspect]
     Indication: HODGKIN^S DISEASE
     Route: 042
  2. ETOPOSIDE [Suspect]
     Indication: HODGKIN^S DISEASE
  3. DOXORUBICIN [Suspect]
     Indication: HODGKIN^S DISEASE
  4. CYCLOPHOSPHAMIDE [Suspect]
     Indication: HODGKIN^S DISEASE
  5. PROCARBAZINE [Suspect]
     Indication: HODGKIN^S DISEASE
  6. PREDNISONE [Suspect]
     Indication: HODGKIN^S DISEASE
  7. AVELOX [Concomitant]
  8. GRANISETRON (GRANISETRON HYDROCHLORIDE) [Concomitant]
  9. NEULASTA (PEGFILGRASTIM) [Concomitant]
  10. EMEND [Concomitant]
  11. UROMITEXAN (MESNA) [Concomitant]

REACTIONS (4)
  - Nasal septum deviation [None]
  - Nasal mucosal hypertrophy [None]
  - Nasal disorder [None]
  - Chronic sinusitis [None]
